FAERS Safety Report 26057866 (Version 1)
Quarter: 2025Q4

REPORT INFORMATION
  Report Type: Spontaneous
  Country: US (occurrence: US)
  Receive Date: 20251118
  Receipt Date: 20251118
  Transmission Date: 20260117
  Serious: No
  Sender: TARO
  Company Number: US-TARO PHARMACEUTICALS USA INC.-2025TAR00514

PATIENT

DRUGS (4)
  1. MUPIROCIN [Suspect]
     Active Substance: MUPIROCIN
     Indication: Ulcer
     Dosage: UNK, SMALL AMOUNT ON A Q-TIP INSIDE THE NOSTRIL
     Route: 045
     Dates: start: 20241126, end: 202412
  2. MUPIROCIN [Suspect]
     Active Substance: MUPIROCIN
     Indication: Infection prophylaxis
  3. FLOMAX [Concomitant]
     Active Substance: TAMSULOSIN HYDROCHLORIDE
     Indication: Product used for unknown indication
     Dosage: UNK, AT NIGHT
     Route: 065
  4. TADALAFIL [Concomitant]
     Active Substance: TADALAFIL
     Indication: Product used for unknown indication
     Dosage: 5 MG
     Route: 065

REACTIONS (10)
  - Increased viscosity of upper respiratory secretion [Recovering/Resolving]
  - Ageusia [Recovering/Resolving]
  - Nasal discomfort [Recovering/Resolving]
  - Rhinorrhoea [Recovering/Resolving]
  - Insomnia [Recovering/Resolving]
  - Rhinalgia [Recovering/Resolving]
  - Anosmia [Recovering/Resolving]
  - Nasal dryness [Recovering/Resolving]
  - Swelling [Recovering/Resolving]
  - Off label use [Unknown]
